FAERS Safety Report 19792577 (Version 1)
Quarter: 2021Q3

REPORT INFORMATION
  Report Type: Spontaneous
  Country: US (occurrence: US)
  Receive Date: 20210906
  Receipt Date: 20210906
  Transmission Date: 20211014
  Serious: No
  Sender: FDA-Public Use
  Company Number: US-ASTRAZENECA-2021A675939

PATIENT
  Sex: Male
  Weight: 99.8 kg

DRUGS (1)
  1. FASENRA [Suspect]
     Active Substance: BENRALIZUMAB
     Indication: PRODUCT USED FOR UNKNOWN INDICATION
     Dosage: UNKNOWN DOSE EVERY FOUR WEEKS
     Route: 058
     Dates: start: 2021

REACTIONS (7)
  - Decreased appetite [Not Recovered/Not Resolved]
  - Dizziness [Recovering/Resolving]
  - Dyspnoea [Not Recovered/Not Resolved]
  - Gait disturbance [Recovering/Resolving]
  - Muscle spasms [Not Recovered/Not Resolved]
  - Abdominal discomfort [Recovered/Resolved]
  - Chest pain [Not Recovered/Not Resolved]

NARRATIVE: CASE EVENT DATE: 2021
